FAERS Safety Report 13124026 (Version 1)
Quarter: 2017Q1

REPORT INFORMATION
  Report Type: Spontaneous
  Country: FR (occurrence: FR)
  Receive Date: 20170118
  Receipt Date: 20170118
  Transmission Date: 20170428
  Serious: Yes (Other)
  Sender: FDA-Public Use
  Company Number: FR-SUN PHARMACEUTICAL INDUSTRIES LTD-2017RR-131179

PATIENT
  Age: 68 Year
  Sex: Female

DRUGS (1)
  1. AMOXICILLINE RANBAXY 1 G COMPRIME DISPERSIBLE [Suspect]
     Active Substance: AMOXICILLIN
     Indication: BRONCHITIS
     Dosage: 1 DF, TID
     Route: 065
     Dates: start: 20161230, end: 20161231

REACTIONS (4)
  - Angioedema [Unknown]
  - Choking sensation [Unknown]
  - Hypertension [Unknown]
  - Heart rate increased [Unknown]

NARRATIVE: CASE EVENT DATE: 20161231
